FAERS Safety Report 18511397 (Version 2)
Quarter: 2021Q1

REPORT INFORMATION
  Report Type: Spontaneous
  Country: FR (occurrence: FR)
  Receive Date: 20201117
  Receipt Date: 20210112
  Transmission Date: 20210419
  Serious: Yes (Hospitalization, Other)
  Sender: FDA-Public Use
  Company Number: NVSC2020FR305689

PATIENT
  Age: 30 Year
  Sex: Male

DRUGS (1)
  1. PARACETAMOL [Suspect]
     Active Substance: ACETAMINOPHEN
     Indication: ALCOHOLIC HANGOVER
     Dosage: UNK (TOOK MORE THAN 2 BOXES OF PARACETAMOL IN LESS THAN 12 HOURS)
     Route: 065

REACTIONS (5)
  - Toxicity to various agents [Recovering/Resolving]
  - Hepatitis acute [Recovering/Resolving]
  - Accidental overdose [Unknown]
  - Hepatitis [Recovering/Resolving]
  - Medication error [Unknown]
